FAERS Safety Report 8600063-3 (Version None)
Quarter: 2012Q3

REPORT INFORMATION
  Report Type: 
  Country: None (occurrence: None)
  Receive Date: 20120816
  Receipt Date: 20120809
  Transmission Date: 20120928
  Serious: Yes (Death)
  Sender: FDA-Public Use
  Company Number: DE-BAXTER-2012BAX000127

PATIENT
  Age: 9 Year
  Sex: Female
  Weight: 28 kg

DRUGS (14)
  1. TOLUIDINBLAU [Suspect]
     Route: 042
     Dates: start: 20120114, end: 20120115
  2. ACETAMINOPHEN [Concomitant]
     Indication: TUMOUR PAIN
     Dosage: AS NEEDED
     Route: 065
  3. VINCRISTINE [Suspect]
     Indication: RHABDOMYOSARCOMA
     Route: 040
     Dates: start: 20120115
  4. METAMIZOL [Concomitant]
     Indication: TUMOUR PAIN
     Dosage: 4 X 450 MG
     Route: 065
     Dates: start: 20120114, end: 20120115
  5. COTRIM [Concomitant]
     Indication: THROMBOSIS PROPHYLAXIS
     Dosage: 2 X 80 MG
     Route: 065
     Dates: start: 20120114, end: 20120115
  6. MESNA [Concomitant]
     Indication: CYST
     Dosage: 24 H  CONTINUOUS INFUSION
     Route: 042
     Dates: start: 20120114, end: 20120115
  7. HYDROMORPHON [Concomitant]
     Indication: TUMOUR PAIN
     Dosage: 4 X 0.3 MG
     Route: 065
     Dates: start: 20120112, end: 20120115
  8. DACTINOMYCIN [Suspect]
     Indication: RHABDOMYOSARCOMA
     Route: 040
     Dates: start: 20120115
  9. GRANISETRON [Concomitant]
     Indication: NAUSEA
     Dosage: 2 X 1.2 MG
     Route: 065
     Dates: start: 20120114, end: 20120115
  10. HEPARIN SODIUM [Concomitant]
     Indication: THROMBOSIS PROPHYLAXIS
     Dosage: 24 H CONTINUOUS INFUSION
     Route: 042
     Dates: start: 20120114, end: 20120115
  11. IFOSFAMIDE [Suspect]
     Indication: RHABDOMYOSARCOMA
     Route: 042
     Dates: start: 20120115
  12. FORTUM 1,0 G [Concomitant]
     Route: 065
     Dates: start: 20120112, end: 20120115
  13. METOCLOPRAMIDE [Concomitant]
     Indication: NAUSEA
     Route: 065
     Dates: start: 20120113, end: 20120115
  14. DIMENHYDRINATE [Concomitant]
     Indication: NAUSEA
     Dosage: AS NEEDED
     Route: 065
     Dates: end: 20120115

REACTIONS (3)
  - PULMONARY EMBOLISM [None]
  - PULMONARY HYPERTENSION [None]
  - CARDIOPULMONARY FAILURE [None]
